FAERS Safety Report 13820416 (Version 1)
Quarter: 2017Q3

REPORT INFORMATION
  Report Type: Spontaneous
  Country: SE (occurrence: SE)
  Receive Date: 20170801
  Receipt Date: 20170801
  Transmission Date: 20171127
  Serious: Yes (Other)
  Sender: FDA-Public Use
  Company Number: SE-ROCHE-1971149

PATIENT
  Age: 59 Year
  Sex: Female

DRUGS (1)
  1. MABTHERA [Suspect]
     Active Substance: RITUXIMAB
     Indication: MULTIPLE SCLEROSIS
     Route: 042
     Dates: start: 20170329

REACTIONS (5)
  - Auditory nerve disorder [Not Recovered/Not Resolved]
  - Dizziness [Recovering/Resolving]
  - Myalgia [Recovering/Resolving]
  - Hypoacusis [Not Recovered/Not Resolved]
  - Arthralgia [Recovering/Resolving]
